FAERS Safety Report 4717118-6 (Version None)
Quarter: 2005Q3

REPORT INFORMATION
  Report Type: 
  Country: None (occurrence: None)
  Receive Date: 20050712
  Receipt Date: 20040713
  Transmission Date: 20060218
  Serious: Yes (Other)
  Sender: FDA-Public Use
  Company Number: PHEH2004US02356

PATIENT
  Sex: Female

DRUGS (3)
  1. GLEEVEC [Suspect]
     Indication: CHRONIC MYELOID LEUKAEMIA
     Dosage: 800 MG, QD
     Dates: start: 20010101
  2. TOPROL-XL [Suspect]
  3. ANTIHYPERTENSIVE DRUGS(NO INGREDIENTS/SUBSTANCES) [Suspect]

REACTIONS (4)
  - ANXIETY [None]
  - DEPRESSION [None]
  - DISEASE PROGRESSION [None]
  - DRUG INEFFECTIVE [None]
